FAERS Safety Report 12636646 (Version 1)
Quarter: 2016Q3

REPORT INFORMATION
  Report Type: Spontaneous
  Country: SE (occurrence: SE)
  Receive Date: 20160809
  Receipt Date: 20160809
  Transmission Date: 20161109
  Serious: Yes (Other)
  Sender: FDA-Public Use
  Company Number: SE-PFIZER INC-2016373411

PATIENT
  Sex: Female

DRUGS (1)
  1. LYRICA [Suspect]
     Active Substance: PREGABALIN
     Dosage: UNK
     Dates: end: 201606

REACTIONS (75)
  - Mental impairment [Unknown]
  - Increased appetite [Unknown]
  - Dysarthria [Unknown]
  - Lethargy [Unknown]
  - Balance disorder [Unknown]
  - Fall [Unknown]
  - Nausea [Unknown]
  - Muscle spasms [Unknown]
  - Mood swings [Unknown]
  - Dyskinesia [Unknown]
  - Throat tightness [Unknown]
  - Swollen tongue [Unknown]
  - Headache [Unknown]
  - Insomnia [Unknown]
  - Peripheral swelling [Unknown]
  - Dyspnoea [Unknown]
  - Chest discomfort [Unknown]
  - Swelling face [Unknown]
  - Dysphagia [Unknown]
  - Paraesthesia [Unknown]
  - Feeling abnormal [Unknown]
  - Diplopia [Unknown]
  - Abdominal distension [Unknown]
  - Eye movement disorder [Unknown]
  - Hyperaesthesia [Unknown]
  - Hypotension [Unknown]
  - Rhinorrhoea [Unknown]
  - Clumsiness [Unknown]
  - Memory impairment [Unknown]
  - Hypoaesthesia [Unknown]
  - Vision blurred [Unknown]
  - Swelling [Unknown]
  - Weight increased [Unknown]
  - Back pain [Unknown]
  - Pain in extremity [Unknown]
  - Anxiety [Unknown]
  - Hyperacusis [Unknown]
  - Hypertension [Unknown]
  - Myalgia [Unknown]
  - Pain [Unknown]
  - Pruritus [Unknown]
  - Dysgraphia [Unknown]
  - Somnolence [Unknown]
  - Feeling drunk [Unknown]
  - Depression [Unknown]
  - Dyspepsia [Unknown]
  - Fatigue [Unknown]
  - Vertigo [Unknown]
  - Gait disturbance [Unknown]
  - Arthralgia [Unknown]
  - Aphasia [Unknown]
  - Dizziness postural [Unknown]
  - Syncope [Unknown]
  - Hot flush [Unknown]
  - Hypoaesthesia oral [Unknown]
  - Muscle twitching [Unknown]
  - Urine output decreased [Unknown]
  - Oropharyngeal pain [Unknown]
  - Hyperhidrosis [Unknown]
  - Rash [Unknown]
  - Musculoskeletal stiffness [Unknown]
  - Dysuria [Unknown]
  - Dizziness [Unknown]
  - Amnesia [Unknown]
  - Tremor [Unknown]
  - Diarrhoea [Unknown]
  - Restlessness [Unknown]
  - Abnormal dreams [Unknown]
  - Panic attack [Unknown]
  - Visual impairment [Unknown]
  - Photopsia [Unknown]
  - Joint swelling [Unknown]
  - Cough [Unknown]
  - Snoring [Unknown]
  - Peripheral coldness [Unknown]
